FAERS Safety Report 15278573 (Version 1)
Quarter: 2018Q3

REPORT INFORMATION
  Report Type: Report from Study
  Country: NL (occurrence: NL)
  Receive Date: 20180815
  Receipt Date: 20180815
  Transmission Date: 20181010
  Serious: Yes (Other)
  Sender: FDA-Public Use
  Company Number: NL-BIOGEN-2017BI00499285

PATIENT
  Sex: Female

DRUGS (3)
  1. GABAPENTIN. [Concomitant]
     Active Substance: GABAPENTIN
     Indication: PRODUCT USED FOR UNKNOWN INDICATION
     Route: 065
  2. TECFIDERA [Suspect]
     Active Substance: DIMETHYL FUMARATE
     Indication: MULTIPLE SCLEROSIS
     Dosage: STARTING DOSE
     Route: 048
     Dates: start: 20170826, end: 20170909
  3. TECFIDERA [Suspect]
     Active Substance: DIMETHYL FUMARATE
     Dosage: MAINTENANCE DOSE
     Route: 048
     Dates: start: 20170909, end: 20171213

REACTIONS (2)
  - Maternal exposure during pregnancy [Recovered/Resolved]
  - Caesarean section [Recovered/Resolved]

NARRATIVE: CASE EVENT DATE: 20170913
